FAERS Safety Report 7631300-X (Version None)
Quarter: 2011Q3

REPORT INFORMATION
  Report Type: 
  Country: None (occurrence: None)
  Receive Date: 20110701
  Receipt Date: 20101112
  Transmission Date: 20111222
  Serious: Yes (Hospitalization)
  Sender: FDA-Public Use
  Company Number: 7027507

PATIENT
  Age: 45 Year
  Sex: Female

DRUGS (7)
  1. REBIF [Suspect]
     Indication: MULTIPLE SCLEROSIS
     Dosage: 44 MCG, 3 IN 1 WK, SUBCUTANEOUS
     Route: 058
     Dates: start: 20050516
  2. DEPAKOTE [Concomitant]
  3. CLONAZEPAM [Concomitant]
  4. FOSAMAX [Concomitant]
  5. REMERON [Concomitant]
  6. LAMICTAL [Concomitant]
  7. TOPAMAX [Concomitant]

REACTIONS (3)
  - MULTIPLE SCLEROSIS RELAPSE [None]
  - DIZZINESS [None]
  - DEHYDRATION [None]
